FAERS Safety Report 8180020-4 (Version None)
Quarter: 2012Q1

REPORT INFORMATION
  Report Type: 
  Country: None (occurrence: None)
  Receive Date: 20120229
  Receipt Date: 20120227
  Transmission Date: 20120608
  Serious: Yes (Hospitalization, Other)
  Sender: FDA-Public Use
  Company Number: TIF2012A00013

PATIENT
  Age: 80 Year
  Sex: Male

DRUGS (2)
  1. METFORMINA (METFORMIN) [Concomitant]
  2. PIOGLITAZONE HYDROCHLORIDE/GLIMEPIRIDE [Suspect]
     Indication: TYPE 2 DIABETES MELLITUS
     Dosage: (2 IN 1 D), ORAL
     Route: 048
     Dates: start: 20090201, end: 20120128

REACTIONS (1)
  - BLADDER TRANSITIONAL CELL CARCINOMA STAGE III [None]
